FAERS Safety Report 11908812 (Version 3)
Quarter: 2016Q1

REPORT INFORMATION
  Report Type: Spontaneous
  Country: CN (occurrence: CN)
  Receive Date: 20160111
  Receipt Date: 20160129
  Transmission Date: 20160526
  Serious: Yes (Other)
  Sender: FDA-Public Use
  Company Number: CN-ABBVIE-16P-035-1535156-00

PATIENT
  Age: 29 Year
  Sex: Male

DRUGS (1)
  1. DEPAKINE CHRONO [Suspect]
     Active Substance: VALPROATE SODIUM
     Indication: EPILEPSY
     Route: 048
     Dates: start: 2014

REACTIONS (14)
  - Foaming at mouth [Recovered/Resolved]
  - Chills [Recovered/Resolved]
  - Tardive dyskinesia [Recovered/Resolved]
  - Somnolence [Not Recovered/Not Resolved]
  - Eye movement disorder [Recovered/Resolved]
  - Seizure [Recovered/Resolved]
  - Loss of consciousness [Recovered/Resolved]
  - Product counterfeit [Recovered/Resolved]
  - Tongue biting [Recovered/Resolved]
  - Medication residue present [Recovered/Resolved]
  - Epilepsy [Recovered/Resolved]
  - Bruxism [Recovered/Resolved]
  - Tongue haemorrhage [Recovered/Resolved]
  - Feeling abnormal [Not Recovered/Not Resolved]

NARRATIVE: CASE EVENT DATE: 2014
